FAERS Safety Report 11158751 (Version 8)
Quarter: 2020Q3

REPORT INFORMATION
  Report Type: Spontaneous
  Country: US (occurrence: US)
  Receive Date: 20150603
  Receipt Date: 20200731
  Transmission Date: 20201102
  Serious: Yes (Hospitalization, Other)
  Sender: FDA-Public Use
  Company Number: US-PFIZER INC-2015182384

PATIENT
  Age: 41 Year
  Sex: Female
  Weight: 54 kg

DRUGS (4)
  1. LYRICA [Suspect]
     Active Substance: PREGABALIN
     Dosage: 100 MG, 2X/DAY
     Route: 048
  2. LYRICA [Suspect]
     Active Substance: PREGABALIN
     Indication: NEUROPATHY PERIPHERAL
     Dosage: 100 MG, 2X/DAY
     Route: 048
  3. LYRICA [Suspect]
     Active Substance: PREGABALIN
     Dosage: 100 MG, 2X/DAY
     Route: 048
     Dates: start: 2013
  4. LYRICA [Suspect]
     Active Substance: PREGABALIN
     Dosage: 200 MG, DAILY
     Dates: start: 2012

REACTIONS (6)
  - Panic reaction [Unknown]
  - Therapeutic product effect incomplete [Unknown]
  - Anxiety [Unknown]
  - Pneumonia [Recovering/Resolving]
  - Drug dependence [Unknown]
  - Product dose omission issue [Unknown]

NARRATIVE: CASE EVENT DATE: 2018
